FAERS Safety Report 11030128 (Version 1)
Quarter: 2015Q2

REPORT INFORMATION
  Report Type: Spontaneous
  Country: US (occurrence: None)
  Receive Date: 20150413
  Receipt Date: 20150413
  Transmission Date: 20150821
  Serious: Yes (Hospitalization, Disabling)
  Sender: FDA-Public Use
  Company Number: ES-ALSI-201500066

PATIENT
  Sex: Male

DRUGS (1)
  1. OXIGENOTERAPIA [Suspect]
     Active Substance: OXYGEN
     Indication: ACCIDENTAL EXPOSURE TO PRODUCT
     Route: 003
     Dates: start: 20150129, end: 20150129

REACTIONS (3)
  - Device leakage [None]
  - Frostbite [None]
  - Accidental exposure to product [None]

NARRATIVE: CASE EVENT DATE: 20150129
